FAERS Safety Report 11384000 (Version 1)
Quarter: 2015Q3

REPORT INFORMATION
  Report Type: Spontaneous
  Country: IN (occurrence: IN)
  Receive Date: 20150815
  Receipt Date: 20150815
  Transmission Date: 20151125
  Serious: Yes (Death, Other)
  Sender: FDA-Public Use
  Company Number: IN-CIPLA LTD.-2015IN06442

PATIENT

DRUGS (3)
  1. ETOSID [Suspect]
     Active Substance: ETOPOSIDE
     Indication: PINEALOBLASTOMA
     Dosage: 100 MG/M2, DAY 1 -DAY3, FOR 6 CYCLES
     Route: 042
  2. METHOTREXATE [Suspect]
     Active Substance: METHOTREXATE
     Indication: METASTASES TO MENINGES
     Dosage: 10 MG, WEEKLY
     Route: 037
  3. CARBOPLATIN. [Suspect]
     Active Substance: CARBOPLATIN
     Indication: PINEALOBLASTOMA
     Dosage: 400 MG/M2, DAY 1, FOR 6 CYCLES
     Route: 042

REACTIONS (2)
  - Disease progression [Fatal]
  - Disease recurrence [Unknown]
